FAERS Safety Report 5586805-2 (Version None)
Quarter: 2008Q1

REPORT INFORMATION
  Report Type: 
  Country: None (occurrence: None)
  Receive Date: 20080110
  Receipt Date: 20080103
  Transmission Date: 20080703
  Serious: Yes (Hospitalization)
  Sender: FDA-Public Use
  Company Number: BR-ABBOTT-08P-020-0432235-00

PATIENT
  Sex: Male

DRUGS (1)
  1. DEPAKENE SYRUP 250MG/5ML [Suspect]
     Indication: INFANTILE SPASMS
     Route: 048
     Dates: start: 20050701

REACTIONS (1)
  - CONVULSION [None]
